FAERS Safety Report 16352149 (Version 1)
Quarter: 2019Q3

REPORT INFORMATION
  Report Type: Spontaneous
  Country: US (occurrence: US)
  Receive Date: 20190523
  Receipt Date: 20190523
  Transmission Date: 20191004
  Serious: Yes (Other)
  Sender: FDA-Public Use
  Company Number: None

PATIENT
  Age: 40 Year
  Sex: Female
  Weight: 61.2 kg

DRUGS (3)
  1. NORTREL 7-7-7 [Concomitant]
  2. MIRABEGRON [Concomitant]
     Active Substance: MIRABEGRON
  3. NITRO-BID [Suspect]
     Active Substance: NITROGLYCERIN
     Indication: ANAL FISSURE
     Dosage: ?          QUANTITY:1 UNKNOWN;?
     Route: 061
     Dates: start: 20190522, end: 20190522

REACTIONS (3)
  - Product communication issue [None]
  - Product dispensing error [None]
  - Product prescribing error [None]

NARRATIVE: CASE EVENT DATE: 20190522
